FAERS Safety Report 6251493-9 (Version None)
Quarter: 2009Q2

REPORT INFORMATION
  Report Type: 
  Country: None (occurrence: None)
  Receive Date: 20090626
  Receipt Date: 20090626
  Transmission Date: 20091009
  Serious: Yes (Other)
  Sender: FDA-Public Use
  Company Number: None

PATIENT
  Age: 52 Year
  Sex: Female
  Weight: 68.0396 kg

DRUGS (2)
  1. ZOLPIDEM [Suspect]
     Indication: INSOMNIA
     Dosage: 10MG NIGHTLY PO; NIGHTLY
     Route: 048
     Dates: start: 20090301, end: 20090430
  2. ZOLPIDEM [Suspect]
     Indication: PAIN
     Dosage: 10MG NIGHTLY PO; NIGHTLY
     Route: 048
     Dates: start: 20090301, end: 20090430

REACTIONS (5)
  - AGITATION [None]
  - DRUG INEFFECTIVE [None]
  - DRUG WITHDRAWAL SYNDROME [None]
  - PRODUCT SUBSTITUTION ISSUE [None]
  - WITHDRAWAL SYNDROME [None]
